FAERS Safety Report 9124610 (Version 1)
Quarter: 2013Q1

REPORT INFORMATION
  Report Type: Spontaneous
  Country: FR (occurrence: FR)
  Receive Date: 20130117
  Receipt Date: 20130117
  Transmission Date: 20140127
  Serious: Yes (Other)
  Sender: FDA-Public Use
  Company Number: FR-PFIZER INC-2013015610

PATIENT
  Age: 85 Year
  Sex: Male

DRUGS (5)
  1. AMLOR [Suspect]
     Indication: HYPERTENSION
     Dosage: 5 MG, 1X/DAY
     Route: 048
     Dates: start: 201205
  2. MEDIATENSYL [Concomitant]
     Dosage: 60 MG, 2X/DAY
     Route: 048
  3. KARDEGIC [Concomitant]
     Dosage: 300 MG, 1X/DAY
     Route: 048
  4. ALLOPURINOL [Concomitant]
     Dosage: 200 MG, 1X/DAY
     Route: 048
  5. COTAREG [Concomitant]
     Dosage: 160MG/25MG, 1X/DAY
     Route: 048

REACTIONS (2)
  - Sleep apnoea syndrome [Not Recovered/Not Resolved]
  - Condition aggravated [Not Recovered/Not Resolved]
